FAERS Safety Report 5088450-4 (Version None)
Quarter: 2006Q3

REPORT INFORMATION
  Report Type: 
  Country: None (occurrence: None)
  Receive Date: 20060822
  Receipt Date: 20060809
  Transmission Date: 20061208
  Serious: Yes (Hospitalization)
  Sender: FDA-Public Use
  Company Number: 2006098966

PATIENT
  Sex: Female
  Weight: 1.8 kg

DRUGS (3)
  1. DOXORUBICIN HCL [Suspect]
     Indication: HODGKIN'S DISEASE STAGE II
     Dosage: (CYCLIC), INTRAVENOUS
     Route: 042
     Dates: start: 20060202
  2. BLEOMYCIN [Suspect]
     Indication: HODGKIN'S DISEASE STAGE II
     Dosage: (CYCLIC) INTRAVENOUS
     Route: 042
     Dates: start: 20060202
  3. VINBLASTINE SULFATE [Suspect]
     Indication: HODGKIN'S DISEASE STAGE II
     Dosage: (CYCLIC) INTRAVENOUS
     Route: 042
     Dates: start: 20060202

REACTIONS (7)
  - APGAR SCORE LOW [None]
  - BRADYCARDIA FOETAL [None]
  - CAESAREAN SECTION [None]
  - DRUG EXPOSURE DURING PREGNANCY [None]
  - FAILED INDUCTION OF LABOUR [None]
  - NEONATAL RESPIRATORY DISTRESS SYNDROME [None]
  - RESPIRATORY DISTRESS [None]
